FAERS Safety Report 5927695-5 (Version None)
Quarter: 2008Q4

REPORT INFORMATION
  Report Type: 
  Country: None (occurrence: None)
  Receive Date: 20081023
  Receipt Date: 20081014
  Transmission Date: 20090506
  Serious: Yes (Disabling)
  Sender: FDA-Public Use
  Company Number: IR-NOVOPROD-273281

PATIENT
  Sex: Male
  Weight: 86 kg

DRUGS (7)
  1. NOVOLOG MIX 70/30 [Suspect]
     Indication: TYPE 2 DIABETES MELLITUS
     Dosage: 24 UNK, QD
     Route: 058
     Dates: start: 20071023
  2. METFORMIN [Concomitant]
     Dosage: 1500 MG, QD
     Route: 048
     Dates: start: 20070301
  3. ASPIRIN [Concomitant]
     Dosage: 80 MG, QD
     Route: 048
     Dates: start: 20070301
  4. SIMVASTATIN [Concomitant]
     Dosage: 20 MG, QD
     Route: 048
     Dates: start: 20070301
  5. GABAPENTIN [Concomitant]
     Dosage: 200 MG, QD
     Dates: start: 20071201
  6. ALLOPRANOL [Concomitant]
     Dosage: 100 MG, QD
     Route: 048
     Dates: start: 20071201
  7. ENALAPRIL MALEATE [Concomitant]
     Dosage: 10 MG, QD
     Route: 048
     Dates: start: 20070301

REACTIONS (1)
  - FACIAL PALSY [None]
